FAERS Safety Report 20675436 (Version 1)
Quarter: 2022Q2

REPORT INFORMATION
  Report Type: Spontaneous
  Country: CA (occurrence: CA)
  Receive Date: 20220405
  Receipt Date: 20220405
  Transmission Date: 20220721
  Serious: Yes (Other)
  Sender: FDA-Public Use
  Company Number: CA-PFIZER INC-202200505533

PATIENT
  Age: 47 Year
  Sex: Female
  Weight: 91 kg

DRUGS (3)
  1. METHOTREXATE SODIUM [Suspect]
     Active Substance: METHOTREXATE SODIUM
     Indication: Cardiac sarcoidosis
     Dosage: 1 DF
     Route: 058
     Dates: start: 202103
  2. METHOTREXATE SODIUM [Suspect]
     Active Substance: METHOTREXATE SODIUM
     Indication: Pulmonary sarcoidosis
  3. PREDNISONE [Suspect]
     Active Substance: PREDNISONE
     Dosage: DOWN TAPERING REGIMEN OF HIGH-DOSE
     Dates: start: 202101

REACTIONS (9)
  - Pulmonary sarcoidosis [Unknown]
  - Disease progression [Unknown]
  - Diabetes mellitus inadequate control [Not Recovered/Not Resolved]
  - Vitamin D decreased [Unknown]
  - Cough [Not Recovered/Not Resolved]
  - Splenomegaly [Unknown]
  - Abdominal lymphadenopathy [Unknown]
  - Off label use [Unknown]
  - Off label use [Unknown]

NARRATIVE: CASE EVENT DATE: 20210301
